FAERS Safety Report 11153324 (Version 1)
Quarter: 2015Q2

REPORT INFORMATION
  Report Type: Spontaneous
  Country: US (occurrence: US)
  Receive Date: 20150601
  Receipt Date: 20150601
  Transmission Date: 20150821
  Serious: No
  Sender: FDA-Public Use
  Company Number: US-TEVA-562344USA

PATIENT
  Age: 72 Year
  Sex: Female

DRUGS (2)
  1. AZILECT [Suspect]
     Active Substance: RASAGILINE MESYLATE
     Indication: PARKINSON^S DISEASE
     Route: 065
  2. CARBIDOPA AND LEVODOPA [Suspect]
     Active Substance: CARBIDOPA\LEVODOPA
     Route: 065

REACTIONS (10)
  - Nightmare [Unknown]
  - Nasopharyngitis [Unknown]
  - Constipation [Unknown]
  - Dyskinesia [Unknown]
  - Abnormal dreams [Unknown]
  - Malaise [Unknown]
  - Vomiting [Unknown]
  - Dry mouth [Unknown]
  - Arthralgia [Unknown]
  - Nausea [Unknown]

NARRATIVE: CASE EVENT DATE: 20150510
